FAERS Safety Report 12519048 (Version 2)
Quarter: 2016Q3

REPORT INFORMATION
  Report Type: Spontaneous
  Country: PL (occurrence: PL)
  Receive Date: 20160701
  Receipt Date: 20160714
  Transmission Date: 20161109
  Serious: Yes (Other)
  Sender: FDA-Public Use
  Company Number: PL-ROCHE-1783041

PATIENT
  Age: 10 Year
  Sex: Female
  Weight: 52.5 kg

DRUGS (10)
  1. CELLCEPT [Concomitant]
     Active Substance: MYCOPHENOLATE MOFETIL\MYCOPHENOLATE MOFETIL HYDROCHLORIDE
     Indication: NEPHROTIC SYNDROME
     Route: 048
     Dates: start: 201407, end: 201512
  2. CYCLOSPORINE. [Concomitant]
     Active Substance: CYCLOSPORINE
  3. RANIGAST [Concomitant]
     Route: 048
     Dates: start: 2008, end: 201603
  4. MABTHERA [Suspect]
     Active Substance: RITUXIMAB
     Indication: NEPHROTIC SYNDROME
     Dosage: 500 MG X 2
     Route: 042
     Dates: start: 20151204, end: 20160322
  5. ZOCOR [Concomitant]
     Active Substance: SIMVASTATIN
     Indication: DYSLIPIDAEMIA
     Route: 048
     Dates: start: 201511, end: 201601
  6. CALPEROS [Concomitant]
     Active Substance: CALCIUM CARBONATE
     Dosage: 1X1G, VARIABLE DOSES
     Route: 065
     Dates: start: 2008, end: 201603
  7. VITAMIN D3 [Concomitant]
     Active Substance: CHOLECALCIFEROL
     Dosage: 1 X 3 DROPS, 1 X 2-3 CAPSULES
     Route: 065
     Dates: start: 2008, end: 201603
  8. TRITACE [Concomitant]
     Active Substance: RAMIPRIL
     Indication: NEPHROTIC SYNDROME
     Route: 048
     Dates: start: 201503
  9. ENCORTON [Concomitant]
     Active Substance: PREDNISONE
     Indication: NEPHROTIC SYNDROME
     Dosage: VARIABLE DOSES
     Route: 048
     Dates: start: 2008
  10. CYCLAID [Concomitant]
     Active Substance: CYCLOSPORINE

REACTIONS (7)
  - Off label use [Unknown]
  - Alopecia [Not Recovered/Not Resolved]
  - Drug interaction [Unknown]
  - Eosinophil count increased [Recovered/Resolved]
  - B-lymphocyte count decreased [Not Recovered/Not Resolved]
  - T-lymphocyte count increased [Recovering/Resolving]
  - Monocyte count increased [Recovered/Resolved]

NARRATIVE: CASE EVENT DATE: 20151221
